FAERS Safety Report 5046507-8 (Version None)
Quarter: 2006Q3

REPORT INFORMATION
  Report Type: 
  Country: None (occurrence: None)
  Receive Date: 20060705
  Receipt Date: 20060705
  Transmission Date: 20061208
  Serious: Yes (Hospitalization, Other)
  Sender: FDA-Public Use
  Company Number: None

PATIENT
  Age: 83 Year
  Sex: Male
  Weight: 87.5 kg

DRUGS (14)
  1. RITUXIMAB [Suspect]
     Indication: NON-HODGKIN'S LYMPHOMA RECURRENT
     Dosage: 750MG   IV
     Route: 042
     Dates: start: 20040902
  2. RITUXIMAB [Suspect]
     Indication: NON-HODGKIN'S LYMPHOMA RECURRENT
     Dosage: 750MG   IV
     Route: 042
     Dates: start: 20060419
  3. GABAPENTIN [Concomitant]
  4. HEPARIN [Concomitant]
  5. GUAIFENESIN [Concomitant]
  6. OMEPRAZOLE [Concomitant]
  7. LISINOPRIL [Concomitant]
  8. MEMENTINE [Concomitant]
  9. LEVAQUIN [Concomitant]
  10. BACTRIM DS [Concomitant]
  11. TRAMADOL HCL [Concomitant]
  12. ACETAMINOPHEN [Concomitant]
  13. DEXAMETHASONE TAB [Concomitant]
  14. BENADRYL [Concomitant]

REACTIONS (5)
  - HYPERSENSITIVITY [None]
  - HYPOXIA [None]
  - INFUSION RELATED REACTION [None]
  - RESPIRATORY DISTRESS [None]
  - TACHYPNOEA [None]
